FAERS Safety Report 6370000-3 (Version None)
Quarter: 2009Q3

REPORT INFORMATION
  Report Type: 
  Country: None (occurrence: None)
  Receive Date: 20090923
  Receipt Date: 20070107
  Transmission Date: 20100115
  Serious: No
  Sender: FDA-Public Use
  Company Number: US-ASTRAZENECA-2006UW06984

PATIENT
  Age: 25 Year
  Sex: Female
  Weight: 141.5 kg

DRUGS (30)
  1. SEROQUEL [Suspect]
     Indication: BIPOLAR DISORDER
     Dosage: 25MG, 200MG
     Route: 048
     Dates: start: 20030422, end: 20040814
  2. SEROQUEL [Suspect]
     Indication: INSOMNIA
     Dosage: 25MG, 200MG
     Route: 048
     Dates: start: 20030422, end: 20040814
  3. SEROQUEL [Suspect]
     Dosage: 50 TO 400 MG
     Route: 048
     Dates: start: 20030201, end: 20060209
  4. SEROQUEL [Suspect]
     Dosage: 50 TO 400 MG
     Route: 048
     Dates: start: 20030201, end: 20060209
  5. RISPERDAL [Suspect]
     Dosage: 1 MG, 3 MG
     Route: 048
     Dates: start: 20040922
  6. RISPERDAL [Suspect]
     Dosage: 2 MG TO 9 MG
     Route: 048
     Dates: start: 20040908
  7. GEODON [Concomitant]
     Route: 048
  8. GEODON [Concomitant]
     Dosage: 8 TO 80 MG
     Route: 048
  9. LAMICTAL [Concomitant]
     Indication: BIPOLAR DISORDER
     Route: 048
     Dates: start: 20050216
  10. DEPO-PROVERA [Concomitant]
     Indication: CONTRACEPTION
     Route: 065
  11. DILANTIN [Concomitant]
     Indication: CONVULSION
     Route: 048
  12. XANAX [Concomitant]
     Route: 048
  13. DEPAKOTE [Concomitant]
     Dosage: 500 TO 2500 MG TAPERING
     Route: 048
  14. SKELAXIN [Concomitant]
     Route: 048
  15. ZOLOFT [Concomitant]
     Route: 048
  16. LUVOX [Concomitant]
     Dosage: 50 TO 100 MG
     Route: 048
  17. HYDROCHLOROTHIAZIDE [Concomitant]
     Route: 048
  18. HALDOL [Concomitant]
     Indication: PSYCHOTIC DISORDER
     Dosage: 5 TO 20 MG
     Route: 048
  19. HALDOL [Concomitant]
     Route: 030
  20. ATIVAN [Concomitant]
     Route: 030
  21. ATIVAN [Concomitant]
     Route: 048
  22. AVANDIA [Concomitant]
     Route: 048
  23. METFORMIN HCL [Concomitant]
     Dosage: 5 TO 500 MG
     Route: 048
  24. TOPAMAX [Concomitant]
     Dosage: 10 TO 200 MG
     Route: 048
  25. LEXAPRO [Concomitant]
     Route: 048
  26. HYDROXYZINE [Concomitant]
     Dosage: 200 TO 400 MG
     Route: 048
  27. ZOLPIDEM [Concomitant]
     Route: 048
  28. BENZTROPINE MESYLATE [Concomitant]
     Indication: EXTRAPYRAMIDAL DISORDER
     Route: 048
  29. BENZTROPINE MESYLATE [Concomitant]
     Route: 030
  30. K DUR [Concomitant]
     Route: 048

REACTIONS (4)
  - DIABETES MELLITUS [None]
  - OBESITY [None]
  - TYPE 2 DIABETES MELLITUS [None]
  - WEIGHT INCREASED [None]
